FAERS Safety Report 4725844-8 (Version None)
Quarter: 2005Q3

REPORT INFORMATION
  Report Type: 
  Country: None (occurrence: None)
  Receive Date: 20050725
  Receipt Date: 20050725
  Transmission Date: 20060218
  Serious: Yes (Life-Threatening)
  Sender: FDA-Public Use
  Company Number: None

PATIENT
  Age: 81 Year
  Sex: Female
  Weight: 66.6 kg

DRUGS (15)
  1. PROMETHAZINE [Suspect]
     Indication: NAUSEA
     Dosage: 25 MG EVERY 6 HOURS INTRAVENOUS
     Route: 042
     Dates: start: 20050610, end: 20050614
  2. MORPHINE SULFATE [Concomitant]
  3. GLIPIZIDE [Concomitant]
  4. HYDROCODONE [Concomitant]
  5. NITROGLYCERIN [Concomitant]
  6. VERAPAMIL [Concomitant]
  7. WARFARIN [Concomitant]
  8. ACETAMINOPHEN [Concomitant]
  9. CILOSTAZOL [Concomitant]
  10. ENOXAPARIN SODIUM [Concomitant]
  11. FERROUS SULFATE TAB [Concomitant]
  12. METOPROLOL TARTRATE [Concomitant]
  13. BRINZOLAMIDE [Concomitant]
  14. CEFTRIAXONE [Concomitant]
  15. TRAVATAN [Concomitant]

REACTIONS (12)
  - ACUTE RESPIRATORY FAILURE [None]
  - BRAIN NATRIURETIC PEPTIDE INCREASED [None]
  - CARDIAC DISORDER [None]
  - CARDIAC FAILURE CONGESTIVE [None]
  - DEPRESSED LEVEL OF CONSCIOUSNESS [None]
  - DRUG HYPERSENSITIVITY [None]
  - HYPERTENSION [None]
  - OXYGEN SATURATION DECREASED [None]
  - PALLOR [None]
  - PERIPHERAL VASCULAR DISORDER [None]
  - RESPIRATORY DEPRESSION [None]
  - SOMNOLENCE [None]
